FAERS Safety Report 5618555-8 (Version None)
Quarter: 2008Q1

REPORT INFORMATION
  Report Type: 
  Country: None (occurrence: None)
  Receive Date: 20080207
  Receipt Date: 20080130
  Transmission Date: 20080703
  Serious: Yes (Death, Disabling)
  Sender: FDA-Public Use
  Company Number: CH-ROCHE-545038

PATIENT
  Sex: Male
  Weight: 60 kg

DRUGS (1)
  1. ROACCUTAN [Suspect]
     Indication: ACNE
     Route: 048
     Dates: start: 19941101, end: 19960601

REACTIONS (2)
  - COMPLETED SUICIDE [None]
  - HALLUCINATION [None]
